FAERS Safety Report 5968439-0 (Version None)
Quarter: 2008Q4

REPORT INFORMATION
  Report Type: 
  Country: None (occurrence: None)
  Receive Date: 20081126
  Receipt Date: 20081121
  Transmission Date: 20090506
  Serious: Yes (Other)
  Sender: FDA-Public Use
  Company Number: US-ASTRAZENECA-2008UW26162

PATIENT
  Age: 73 Year
  Sex: Female

DRUGS (1)
  1. IRESSA [Suspect]
     Route: 048
     Dates: start: 20071005

REACTIONS (5)
  - DIARRHOEA [None]
  - DRY SKIN [None]
  - EYE INFECTION [None]
  - NAIL DISORDER [None]
  - RASH [None]
